FAERS Safety Report 7954492-1 (Version None)
Quarter: 2011Q4

REPORT INFORMATION
  Report Type: 
  Country: None (occurrence: None)
  Receive Date: 20111202
  Receipt Date: 20111123
  Transmission Date: 20120403
  Serious: Yes (Other)
  Sender: FDA-Public Use
  Company Number: US-JNJFOC-20091000204

PATIENT
  Sex: Female
  Weight: 30.39 kg

DRUGS (10)
  1. INFLIXIMAB [Suspect]
     Route: 042
     Dates: start: 20090812
  2. INFLIXIMAB [Suspect]
     Route: 042
     Dates: start: 20090206
  3. ANTIHISTAMINE [Concomitant]
     Indication: PREMEDICATION
  4. ACETAMINOPHEN [Concomitant]
     Indication: PREMEDICATION
  5. INFLIXIMAB [Suspect]
     Route: 042
     Dates: start: 20090701
  6. MESALAZINE (5-ASA) [Concomitant]
  7. INFLIXIMAB [Suspect]
     Route: 042
     Dates: start: 20090917
  8. INFLIXIMAB [Suspect]
     Route: 042
     Dates: start: 20090220
  9. INFLIXIMAB [Suspect]
     Route: 042
     Dates: start: 20090430
  10. INFLIXIMAB [Suspect]
     Indication: CROHN'S DISEASE
     Route: 042
     Dates: start: 20090528

REACTIONS (1)
  - BASAL CELL CARCINOMA [None]
